FAERS Safety Report 8521249-2 (Version None)
Quarter: 2012Q3

REPORT INFORMATION
  Report Type: 
  Country: None (occurrence: None)
  Receive Date: 20120719
  Receipt Date: 20120706
  Transmission Date: 20120928
  Serious: Yes (Hospitalization)
  Sender: FDA-Public Use
  Company Number: DE-ROCHE-1085943

PATIENT
  Age: 75 Year
  Sex: Male
  Weight: 80 kg

DRUGS (8)
  1. CYCLOSPORINE [Suspect]
     Indication: IMMUNOSUPPRESSION
     Dates: start: 20071109
  2. INSULIN [Concomitant]
     Indication: DIABETES MELLITUS
  3. SIROLIMUS [Suspect]
     Indication: PROPHYLAXIS
     Dates: start: 20080210
  4. RAMIPRIL [Suspect]
     Indication: HYPERTENSION
  5. MOXONIDINE [Suspect]
     Indication: HYPERTENSION
  6. PANTOPRAZOLE [Concomitant]
     Indication: ULCER
     Dates: start: 20071109
  7. CELLCEPT [Suspect]
     Indication: IMMUNOSUPPRESSION
  8. HYDROCHLOROTHIAZIDE [Concomitant]
     Indication: RENAL FAILURE

REACTIONS (1)
  - HEPATIC NEOPLASM MALIGNANT RECURRENT [None]
